FAERS Safety Report 24738402 (Version 1)
Quarter: 2024Q4

REPORT INFORMATION
  Report Type: Spontaneous
  Country: GB (occurrence: GB)
  Receive Date: 20241216
  Receipt Date: 20241216
  Transmission Date: 20250114
  Serious: Yes (Other)
  Sender: PFIZER
  Company Number: None

PATIENT
  Age: 50 Year
  Sex: Male

DRUGS (2)
  1. DOXYCYCLINE [Suspect]
     Active Substance: DOXYCYCLINE
     Dosage: 2 TO BE TAKEN ON THE FIRST DAY AND 1 TO BE TAKEN DAILY AFTER
  2. DOXYCYCLINE [Suspect]
     Active Substance: DOXYCYCLINE
     Dosage: 2 TO BE TAKEN ON THE FIRST DAY AND 1 TO BE TAKEN DAILY AFTER

REACTIONS (1)
  - Yellow skin [Unknown]

NARRATIVE: CASE EVENT DATE: 20241211
